FAERS Safety Report 13092071 (Version 2)
Quarter: 2017Q1

REPORT INFORMATION
  Report Type: Spontaneous
  Country: BE (occurrence: BE)
  Receive Date: 20170106
  Receipt Date: 20170202
  Transmission Date: 20170428
  Serious: Yes (Death, Life-Threatening)
  Sender: FDA-Public Use
  Company Number: BE-ASTRAZENECA-2016SF07173

PATIENT
  Age: 34275 Day
  Sex: Female
  Weight: 54.9 kg

DRUGS (3)
  1. SEROQUEL XR [Suspect]
     Active Substance: QUETIAPINE FUMARATE
     Indication: MAJOR DEPRESSION
     Route: 048
     Dates: start: 20160922
  2. CORTISONE [Concomitant]
     Active Substance: CORTISONE\HYDROCORTISONE
  3. OTHER MEDICATION [Concomitant]
     Active Substance: UNSPECIFIED INGREDIENT

REACTIONS (4)
  - Off label use [Unknown]
  - Product use issue [Unknown]
  - Rheumatic disorder [Fatal]
  - Pemphigoid [Unknown]

NARRATIVE: CASE EVENT DATE: 20161108
